FAERS Safety Report 18177834 (Version 1)
Quarter: 2020Q3

REPORT INFORMATION
  Report Type: Spontaneous
  Country: GB (occurrence: GB)
  Receive Date: 20200820
  Receipt Date: 20200820
  Transmission Date: 20201103
  Serious: Yes (Other)
  Sender: FDA-Public Use
  Company Number: GB-JAZZ-2020-GB-007729

PATIENT
  Age: 42 Year
  Sex: Female
  Weight: 74 kg

DRUGS (2)
  1. XYREM [Suspect]
     Active Substance: SODIUM OXYBATE
     Indication: CATAPLEXY
  2. XYREM [Suspect]
     Active Substance: SODIUM OXYBATE
     Indication: NARCOLEPSY
     Dosage: UNKNOWN DOSE, BID
     Route: 048
     Dates: start: 20160817

REACTIONS (2)
  - Narcolepsy [Unknown]
  - Drug ineffective [Unknown]
